FAERS Safety Report 10744132 (Version 1)
Quarter: 2015Q1

REPORT INFORMATION
  Report Type: Spontaneous
  Country: US (occurrence: None)
  Receive Date: 20150126
  Receipt Date: 20150126
  Transmission Date: 20150721
  Serious: Yes (Other)
  Sender: FDA-Public Use
  Company Number: 2015SCAL000011

PATIENT

DRUGS (1)
  1. LAMOTRIGINE (LAMOTRIGINE) UNKNOWN [Suspect]
     Active Substance: LAMOTRIGINE
     Indication: PRODUCT USED FOR UNKNOWN INDICATION

REACTIONS (5)
  - Hypotonia [None]
  - Motor developmental delay [None]
  - Foetal exposure during pregnancy [None]
  - Maternal drugs affecting foetus [None]
  - Speech disorder developmental [None]
